FAERS Safety Report 7362789-1 (Version None)
Quarter: 2011Q1

REPORT INFORMATION
  Report Type: 
  Country: None (occurrence: None)
  Receive Date: 20110321
  Receipt Date: 20110310
  Transmission Date: 20110831
  Serious: No
  Sender: FDA-Public Use
  Company Number: US-BIOGENIDEC-2011BI008383

PATIENT
  Sex: Female

DRUGS (1)
  1. TYSABRI [Suspect]
     Indication: MULTIPLE SCLEROSIS
     Route: 042
     Dates: start: 20081219, end: 20101101

REACTIONS (9)
  - ANXIETY [None]
  - WEIGHT ABNORMAL [None]
  - MOOD ALTERED [None]
  - MEMORY IMPAIRMENT [None]
  - DEPRESSION [None]
  - MOOD SWINGS [None]
  - AFFECT LABILITY [None]
  - PSORIASIS [None]
  - DIZZINESS [None]
